FAERS Safety Report 6731648-7 (Version None)
Quarter: 2010Q2

REPORT INFORMATION
  Report Type: 
  Country: None (occurrence: None)
  Receive Date: 20100519
  Receipt Date: 20100507
  Transmission Date: 20101027
  Serious: No
  Sender: FDA-Public Use
  Company Number: US-JNJFOC-20100502994

PATIENT
  Sex: Female
  Weight: 83.46 kg

DRUGS (8)
  1. DURAGESIC-100 [Suspect]
     Indication: PAIN
     Route: 062
  2. DURAGESIC-100 [Suspect]
     Dosage: NDC: 50458-0093-05
     Route: 062
  3. MORPHINE SULFATE [Concomitant]
     Indication: BREAKTHROUGH PAIN
     Route: 048
  4. BACLOFEN [Concomitant]
     Indication: MUSCLE SPASMS
     Route: 048
  5. CYMBALTA [Concomitant]
     Indication: NEUROPATHY PERIPHERAL
     Route: 048
  6. CYMBALTA [Concomitant]
     Indication: DEPRESSION
     Route: 048
  7. METFORMIN HYDROCHLORIDE [Concomitant]
     Indication: DIABETES MELLITUS
     Route: 048
  8. RITALIN [Concomitant]
     Indication: ATTENTION DEFICIT/HYPERACTIVITY DISORDER
     Route: 048

REACTIONS (4)
  - APPLICATION SITE RASH [None]
  - PAIN [None]
  - PRODUCT ADHESION ISSUE [None]
  - WRONG TECHNIQUE IN DRUG USAGE PROCESS [None]
